FAERS Safety Report 8201193-0 (Version None)
Quarter: 2012Q1

REPORT INFORMATION
  Report Type: 
  Country: None (occurrence: None)
  Receive Date: 20120312
  Receipt Date: 20120305
  Transmission Date: 20120608
  Serious: Yes (Hospitalization, Other)
  Sender: FDA-Public Use
  Company Number: PHHO2005CA07391

PATIENT
  Sex: Female

DRUGS (16)
  1. SANDOSTATIN LAR [Suspect]
     Indication: ACROMEGALY
     Dosage: 20 MG, QMO
     Route: 030
     Dates: start: 20021120
  2. ACETAMINOPHEN [Concomitant]
     Indication: OSTEITIS DEFORMANS
     Route: 048
  3. TRAZODONE HCL [Concomitant]
     Indication: DEPRESSION
     Dosage: 50 MG, TID
     Route: 048
  4. ALTACE [Concomitant]
     Dosage: 5 MG, QD
     Route: 048
  5. PREMARIN [Concomitant]
     Dosage: 0.625 MG, QD
     Route: 048
  6. XANAX [Concomitant]
     Dosage: 0.5 MG, QD
     Route: 048
  7. ALTACE [Concomitant]
     Dosage: UNK UKN, UNK
     Dates: start: 20050201
  8. SIMVASTATIN [Concomitant]
     Indication: BLOOD CHOLESTEROL
     Dosage: 20 MG, QD
     Route: 048
  9. ACETAMINOPHEN [Concomitant]
     Indication: OSTEOPOROSIS
  10. APO-ATENOL [Concomitant]
     Indication: BLOOD PRESSURE
     Dosage: 100 MG, QD
     Route: 048
  11. APO-FUROSEMIDE [Concomitant]
     Dosage: 20 MG, QD
     Route: 048
  12. PENICILLIN [Concomitant]
  13. SYNTHROID [Concomitant]
     Dosage: 0.115 MG, QD
     Route: 048
  14. ROBAXACET [Concomitant]
  15. SANDOSTATIN LAR [Suspect]
     Dosage: 30 MG, QMO
     Route: 030
  16. METFORMIN HCL [Concomitant]
     Indication: DIABETES MELLITUS
     Dosage: 500 MG, TID
     Route: 048

REACTIONS (12)
  - CARDIOMEGALY [None]
  - HEADACHE [None]
  - BREAST MASS [None]
  - HYPERGLYCAEMIA [None]
  - PERICARDIAL EFFUSION [None]
  - PNEUMONIA [None]
  - PERIARTHRITIS [None]
  - HYPOTENSION [None]
  - MUSCULOSKELETAL PAIN [None]
  - LUNG DISORDER [None]
  - PAIN [None]
  - BLOOD PRESSURE SYSTOLIC INCREASED [None]
